FAERS Safety Report 9381464 (Version 1)
Quarter: 2013Q3

REPORT INFORMATION
  Report Type: Spontaneous
  Country: NO (occurrence: NO)
  Receive Date: 20130703
  Receipt Date: 20130703
  Transmission Date: 20140515
  Serious: Yes (Other)
  Sender: FDA-Public Use
  Company Number: NO-MYLANLABS-2013S1014324

PATIENT
  Sex: 0
  Weight: 2.84 kg

DRUGS (1)
  1. REMIFENTANIL [Suspect]
     Route: 064

REACTIONS (3)
  - Neonatal respiratory depression [Unknown]
  - Acidosis [Unknown]
  - Foetal exposure during pregnancy [Unknown]
